FAERS Safety Report 25743555 (Version 1)
Quarter: 2025Q3

REPORT INFORMATION
  Report Type: Spontaneous
  Country: GB (occurrence: GB)
  Receive Date: 20250831
  Receipt Date: 20250831
  Transmission Date: 20251020
  Serious: Yes (Life-Threatening, Other)
  Sender: CIPLA
  Company Number: GB-MHRA-MED-202508171758478730-YCRQL

PATIENT

DRUGS (5)
  1. FINASTERIDE [Suspect]
     Active Substance: FINASTERIDE
     Indication: Prostatomegaly
     Route: 065
     Dates: start: 20240501, end: 20250801
  2. ALFUZOSIN HYDROCHLORIDE [Concomitant]
     Active Substance: ALFUZOSIN HYDROCHLORIDE
     Indication: Product used for unknown indication
     Route: 065
  3. AMITRIPTYLINE [Concomitant]
     Active Substance: AMITRIPTYLINE
     Indication: Product used for unknown indication
     Route: 065
  4. OMEPRAZOLE [Concomitant]
     Active Substance: OMEPRAZOLE
     Indication: Product used for unknown indication
     Route: 065
  5. CALCIUM CARBONATE\CHOLECALCIFEROL [Concomitant]
     Active Substance: CALCIUM CARBONATE\CHOLECALCIFEROL
     Indication: Product used for unknown indication
     Route: 065

REACTIONS (5)
  - Social avoidant behaviour [Unknown]
  - Anger [Unknown]
  - Aggression [Unknown]
  - Social problem [Unknown]
  - Depression [Recovering/Resolving]
